FAERS Safety Report 21064777 (Version 1)
Quarter: 2022Q3

REPORT INFORMATION
  Report Type: Spontaneous
  Country: FR (occurrence: FR)
  Receive Date: 20220711
  Receipt Date: 20220711
  Transmission Date: 20221027
  Serious: Yes (Hospitalization)
  Sender: FDA-Public Use
  Company Number: None

PATIENT
  Age: 22 Year
  Sex: Male

DRUGS (8)
  1. TRAMADOL [Suspect]
     Active Substance: TRAMADOL
     Indication: Product used for unknown indication
     Dosage: 2-3 BLISTER PACKS OF TRAMADOL PER WEEK WITH ONE BLISTER PACK AT EACH DOSE
     Route: 065
  2. COCAINE [Suspect]
     Active Substance: COCAINE
     Indication: Product used for unknown indication
     Dosage: UNK, 1 GRAM SNORTED A FEW TIMES A MONTH
     Route: 065
  3. CANNABIS SATIVA SUBSP. INDICA TOP [Suspect]
     Active Substance: CANNABIS SATIVA SUBSP. INDICA TOP
     Indication: Product used for unknown indication
     Dosage: 7/8 JOINTS/DAY STARTING IN THE MORNING (PEAK CONSUMPTION AT 20 JOINTS/D)
     Route: 065
  4. RIVOTRIL [Suspect]
     Active Substance: CLONAZEPAM
     Indication: Product used for unknown indication
     Dosage: UNK, USES RIVOTRIL WHEN HE FINDS IT FOR COCAINE DESCENT
     Route: 065
  5. CODEINE\HERBALS [Suspect]
     Active Substance: CODEINE\HERBALS
     Indication: Product used for unknown indication
     Dosage: UNK
     Route: 065
  6. SUBUTEX [Suspect]
     Active Substance: BUPRENORPHINE HYDROCHLORIDE
     Indication: Product used for unknown indication
     Dosage: UNK, MISUSE OF SUBUTEX BY SMOKING OR SNIFFING
     Route: 065
  7. SKENAN [Suspect]
     Active Substance: MORPHINE SULFATE
     Indication: Product used for unknown indication
     Dosage: UNK
     Route: 065
  8. XANAX [Suspect]
     Active Substance: ALPRAZOLAM
     Indication: Product used for unknown indication
     Dosage: UNK, 1 BLISTER PACK 2 TO 3 TIMES A WEEK
     Route: 065

REACTIONS (3)
  - Drug dependence [Recovering/Resolving]
  - Sinusitis [Not Recovered/Not Resolved]
  - Intentional product misuse [Recovering/Resolving]
